FAERS Safety Report 18428793 (Version 3)
Quarter: 2021Q2

REPORT INFORMATION
  Report Type: Report from Study
  Country: None (occurrence: JP)
  Receive Date: 20201027
  Receipt Date: 20210610
  Transmission Date: 20210717
  Serious: Yes (Hospitalization)
  Sender: FDA-Public Use
  Company Number: JP-ABBVIE-19K-087-2845129-00

PATIENT
  Age: 71 Year
  Sex: Female

DRUGS (6)
  1. DUODOPA [Suspect]
     Active Substance: CARBIDOPA\LEVODOPA
     Dosage: MD: 5.4 ML, CD: 3.7 ML/HR X 16 HRS, ED: 1 ML/UNIT X 2.
     Route: 050
     Dates: start: 20190708, end: 20200905
  2. DUODOPA [Suspect]
     Active Substance: CARBIDOPA\LEVODOPA
     Indication: PARKINSON^S DISEASE
     Dosage: MD: 5.4 ML?CD: 3.5 ML/HR X 16 HRS?ED: 1 ML/UNIT X 2
     Route: 050
     Dates: start: 20190612, end: 20190701
  3. DUODOPA [Suspect]
     Active Substance: CARBIDOPA\LEVODOPA
     Dosage: MD: 5.4 ML?CD: 3.9 ML/HR X 16 HRS?ED: 1 ML/UNIT X 2
     Route: 050
     Dates: start: 20200905
  4. DANTROLENE SODIUM HYDRATE [Concomitant]
     Active Substance: DANTROLENE SODIUM
     Indication: PRODUCT USED FOR UNKNOWN INDICATION
     Route: 048
  5. ESZOPICLONE. [Concomitant]
     Active Substance: ESZOPICLONE
     Indication: PRODUCT USED FOR UNKNOWN INDICATION
     Route: 048
  6. CLONAZEPAM. [Concomitant]
     Active Substance: CLONAZEPAM
     Indication: PRODUCT USED FOR UNKNOWN INDICATION
     Route: 048

REACTIONS (24)
  - Miliaria [Recovered/Resolved]
  - Decreased appetite [Unknown]
  - Weight decreased [Unknown]
  - Stoma site inflammation [Unknown]
  - Malaise [Unknown]
  - Medical device site erosion [Recovering/Resolving]
  - Pain in extremity [Recovered/Resolved]
  - Fatigue [Unknown]
  - Therapeutic product effect delayed [Unknown]
  - Stoma site discharge [Not Recovered/Not Resolved]
  - Somnolence [Unknown]
  - Musculoskeletal stiffness [Not Recovered/Not Resolved]
  - Medical device site erythema [Unknown]
  - Stoma site erythema [Recovered/Resolved]
  - Dizziness [Unknown]
  - Depressed mood [Unknown]
  - Gait disturbance [Recovering/Resolving]
  - Device issue [Unknown]
  - Pyrexia [Unknown]
  - Muscular weakness [Unknown]
  - Hypoacusis [Unknown]
  - Faeces discoloured [Unknown]
  - Hypokinesia [Unknown]
  - Stoma site pain [Recovered/Resolved]

NARRATIVE: CASE EVENT DATE: 2019
